FAERS Safety Report 18549420 (Version 1)
Quarter: 2020Q4

REPORT INFORMATION
  Report Type: Spontaneous
  Country: BR (occurrence: BR)
  Receive Date: 20201126
  Receipt Date: 20201126
  Transmission Date: 20210114
  Serious: Yes (Other)
  Sender: FDA-Public Use
  Company Number: BR-GLAXOSMITHKLINE-BR2019AMR166657

PATIENT
  Age: 56 Year
  Sex: Female

DRUGS (1)
  1. NUCALA [Suspect]
     Active Substance: MEPOLIZUMAB
     Indication: ASTHMA
     Dosage: 100 MG
     Dates: start: 20190905, end: 20200228

REACTIONS (15)
  - Nasopharyngitis [Unknown]
  - Wheezing [Unknown]
  - Therapy interrupted [Unknown]
  - Heart rate increased [Recovering/Resolving]
  - Throat tightness [Unknown]
  - Sinusitis [Unknown]
  - Dyspnoea [Unknown]
  - Fatigue [Unknown]
  - Mouth breathing [Unknown]
  - Inappropriate schedule of product administration [Unknown]
  - Social problem [Unknown]
  - Asthmatic crisis [Unknown]
  - Hypertension [Recovering/Resolving]
  - Ill-defined disorder [Unknown]
  - Catarrh [Unknown]

NARRATIVE: CASE EVENT DATE: 20200211
